FAERS Safety Report 11939851 (Version 1)
Quarter: 2016Q1

REPORT INFORMATION
  Report Type: Spontaneous
  Country: US (occurrence: US)
  Receive Date: 20160122
  Receipt Date: 20160122
  Transmission Date: 20160526
  Serious: No
  Sender: FDA-Public Use
  Company Number: US-PERRIGO-15US008259

PATIENT
  Age: 70 Year
  Sex: Female

DRUGS (4)
  1. SULFACID [Suspect]
     Active Substance: SULFACETAMIDE SODIUM
     Indication: ROSACEA
     Dosage: UNKNOWN, UNKNOWN
     Route: 061
     Dates: start: 2015
  2. MINOCYCLINE [Suspect]
     Active Substance: MINOCYCLINE\MINOCYCLINE HYDROCHLORIDE
     Indication: ROSACEA
     Dosage: UNKNOWN, UNKNOWN
     Route: 048
     Dates: start: 2015
  3. EXEMESTANE. [Concomitant]
     Active Substance: EXEMESTANE
     Indication: PRODUCT USED FOR UNKNOWN INDICATION
     Route: 065
     Dates: start: 201404, end: 201504
  4. CLINDAMYCIN PHOSPHATE. [Suspect]
     Active Substance: CLINDAMYCIN PHOSPHATE
     Indication: ROSACEA
     Dosage: UNKNOWN, UNKNOWN
     Route: 061
     Dates: start: 2015

REACTIONS (4)
  - Furuncle [Unknown]
  - Pain [Unknown]
  - Condition aggravated [Unknown]
  - Off label use [Unknown]

NARRATIVE: CASE EVENT DATE: 2015
